FAERS Safety Report 4432995-4 (Version None)
Quarter: 2004Q3

REPORT INFORMATION
  Report Type: 
  Country: None (occurrence: None)
  Receive Date: 20040726
  Receipt Date: 20040416
  Transmission Date: 20050211
  Serious: No
  Sender: FDA-Public Use
  Company Number: USA031255583

PATIENT
  Age: 67 Year
  Sex: Female

DRUGS (2)
  1. FORTEO [Suspect]
     Indication: OSTEOPOROSIS
     Dates: start: 20031218
  2. ALLERGY SHOT [Concomitant]

REACTIONS (5)
  - INJECTION SITE ERYTHEMA [None]
  - INSOMNIA [None]
  - PURPURA [None]
  - RASH [None]
  - WEIGHT INCREASED [None]
